FAERS Safety Report 5311891-4 (Version None)
Quarter: 2007Q2

REPORT INFORMATION
  Report Type: 
  Country: None (occurrence: None)
  Receive Date: 20070426
  Receipt Date: 20070426
  Transmission Date: 20071010
  Serious: Yes (Life-Threatening, Hospitalization, Other)
  Sender: FDA-Public Use
  Company Number: None

PATIENT
  Age: 61 Year
  Sex: Female
  Weight: 65.7716 kg

DRUGS (2)
  1. LEVAPAK 750 MG ORTHO-MCNEIL [Suspect]
     Indication: COUGH
     Dosage: 750 MG ONE TIME DAY PO
     Route: 048
     Dates: start: 20070219, end: 20070221
  2. LEVAPAK 750 MG ORTHO-MCNEIL [Suspect]
     Indication: PYREXIA
     Dosage: 750 MG ONE TIME DAY PO
     Route: 048
     Dates: start: 20070219, end: 20070221

REACTIONS (13)
  - ABASIA [None]
  - BLOOD PRESSURE INCREASED [None]
  - CEREBROVASCULAR ACCIDENT [None]
  - FATIGUE [None]
  - GAIT DISTURBANCE [None]
  - GUILLAIN-BARRE SYNDROME [None]
  - HEART RATE INCREASED [None]
  - HEMIPARESIS [None]
  - HYPOAESTHESIA [None]
  - MUSCLE SPASMS [None]
  - MUSCULAR WEAKNESS [None]
  - PARAESTHESIA [None]
  - VOMITING [None]
